FAERS Safety Report 7645982-X (Version None)
Quarter: 2011Q3

REPORT INFORMATION
  Report Type: 
  Country: None (occurrence: None)
  Receive Date: 20110729
  Receipt Date: 20110720
  Transmission Date: 20111222
  Serious: Yes (Hospitalization)
  Sender: FDA-Public Use
  Company Number: FR-ASTRAZENECA-2011SE17998

PATIENT
  Age: 24821 Day
  Sex: Male

DRUGS (5)
  1. CELOCURINE [Suspect]
     Route: 042
     Dates: start: 20110207, end: 20110207
  2. SUFENTANIL CITRATE [Suspect]
     Route: 042
     Dates: start: 20110207, end: 20110207
  3. OMEPRAZOLE [Concomitant]
     Route: 048
  4. DIPRIVAN [Suspect]
     Route: 042
     Dates: start: 20110207, end: 20110207
  5. CANDESARTAN CILEXETIL [Concomitant]

REACTIONS (4)
  - BRONCHOSPASM [None]
  - RASH [None]
  - HYPOTENSION [None]
  - ANAPHYLACTIC SHOCK [None]
